FAERS Safety Report 6522596-6 (Version None)
Quarter: 2009Q4

REPORT INFORMATION
  Report Type: 
  Country: None (occurrence: None)
  Receive Date: 20091230
  Receipt Date: 20091218
  Transmission Date: 20100525
  Serious: Yes (Other)
  Sender: FDA-Public Use
  Company Number: CA-AMGEN-QUU381355

PATIENT
  Age: 47 Year
  Sex: Female
  Weight: 72 kg

DRUGS (8)
  1. NEUPOGEN [Suspect]
     Indication: DRUG USE FOR UNKNOWN INDICATION
     Route: 058
  2. DEXAMETHASONE [Concomitant]
  3. LIPITOR [Concomitant]
  4. ONDANSETRON [Concomitant]
  5. PROCHLORPERAZINE [Concomitant]
  6. OXYCET [Concomitant]
  7. TYLENOL (CAPLET) [Concomitant]
  8. VALSARTAN [Concomitant]

REACTIONS (4)
  - ANAPHYLACTIC REACTION [None]
  - FLUSHING [None]
  - HYPOTENSION [None]
  - SYNCOPE [None]
